FAERS Safety Report 9475569 (Version 2)
Quarter: 2013Q3

REPORT INFORMATION
  Report Type: Spontaneous
  Country: GB (occurrence: GB)
  Receive Date: 20130826
  Receipt Date: 20130830
  Transmission Date: 20140515
  Serious: Yes (Hospitalization, Other)
  Sender: FDA-Public Use
  Company Number: IE-AMGEN-IRLSP2013058448

PATIENT
  Age: 70 Year
  Sex: Female
  Weight: 52.8 kg

DRUGS (9)
  1. PROLIA [Suspect]
     Indication: OSTEOPOROSIS
     Dosage: 60 MG, UNK
     Route: 058
     Dates: start: 20130410, end: 20130807
  2. ALLOPURINOL [Concomitant]
  3. BISOPROLOL [Concomitant]
  4. CLENIL MODULITE [Concomitant]
     Dosage: 200 MUG, BID
  5. GTN [Concomitant]
  6. LEVOTHYROXINE [Concomitant]
  7. RAMIPRIL [Concomitant]
  8. SALBUTAMOL [Concomitant]
  9. WARFARIN [Concomitant]

REACTIONS (3)
  - Cardiac failure congestive [Recovered/Resolved]
  - Palpitations [Recovered/Resolved]
  - Dyspnoea [Recovered/Resolved]
